FAERS Safety Report 6234577-0 (Version None)
Quarter: 2009Q2

REPORT INFORMATION
  Report Type: 
  Country: None (occurrence: None)
  Receive Date: 20090616
  Receipt Date: 20090616
  Transmission Date: 20091009
  Serious: Yes (Life-Threatening, Other)
  Sender: FDA-Public Use
  Company Number: None

PATIENT
  Age: 26 Year
  Sex: Male
  Weight: 129.2752 kg

DRUGS (3)
  1. RISPERIDONE [Suspect]
     Indication: PARANOIA
     Dosage: 3 MG ONCE A DAY PO
     Route: 048
     Dates: start: 20090415, end: 20090614
  2. RISPERIDONE [Suspect]
     Indication: PSYCHOTIC DISORDER
     Dosage: 3 MG ONCE A DAY PO
     Route: 048
     Dates: start: 20090415, end: 20090614
  3. RISPERIDONE [Suspect]
     Indication: TOURETTE'S DISORDER
     Dosage: 3 MG ONCE A DAY PO
     Route: 048
     Dates: start: 20090415, end: 20090614

REACTIONS (7)
  - DISTURBANCE IN ATTENTION [None]
  - DRUG INEFFECTIVE [None]
  - MALAISE [None]
  - MOOD SWINGS [None]
  - PRODUCT SUBSTITUTION ISSUE [None]
  - SUICIDAL IDEATION [None]
  - THINKING ABNORMAL [None]
